FAERS Safety Report 5895345-2 (Version None)
Quarter: 2008Q3

REPORT INFORMATION
  Report Type: 
  Country: None (occurrence: None)
  Receive Date: 20080923
  Receipt Date: 20080923
  Transmission Date: 20090109
  Serious: Yes (Other)
  Sender: FDA-Public Use
  Company Number: None

PATIENT
  Age: 18 Month
  Sex: Male
  Weight: 10.4327 kg

DRUGS (2)
  1. AZITHROMYCIN [Suspect]
     Indication: EAR INFECTION
     Dosage: 3 ML ONCE A DAY/ 5 DAYS PO
     Route: 048
     Dates: start: 20071115, end: 20071120
  2. AZITHROMYCIN [Suspect]
     Indication: SINUSITIS
     Dosage: 3 ML ONCE A DAY/ 5 DAYS PO
     Route: 048
     Dates: start: 20071115, end: 20071120

REACTIONS (3)
  - DRUG INEFFECTIVE [None]
  - MALAISE [None]
  - PATHOGEN RESISTANCE [None]
